FAERS Safety Report 17824090 (Version 1)
Quarter: 2020Q2

REPORT INFORMATION
  Report Type: Spontaneous
  Country: US (occurrence: US)
  Receive Date: 20200526
  Receipt Date: 20200526
  Transmission Date: 20200714
  Serious: Yes (Other)
  Sender: FDA-Public Use
  Company Number: None

PATIENT
  Age: 65 Year
  Sex: Male
  Weight: 58.7 kg

DRUGS (1)
  1. REMDESIVIR. [Suspect]
     Active Substance: REMDESIVIR
     Indication: COVID-19
     Route: 041
     Dates: start: 20200521, end: 20200525

REACTIONS (4)
  - Product use in unapproved indication [None]
  - Ischaemic stroke [None]
  - Vertebral artery occlusion [None]
  - Clinical trial participant [None]

NARRATIVE: CASE EVENT DATE: 20200523
